FAERS Safety Report 18176485 (Version 1)
Quarter: 2020Q3

REPORT INFORMATION
  Report Type: Spontaneous
  Country: US (occurrence: US)
  Receive Date: 20200820
  Receipt Date: 20200820
  Transmission Date: 20201103
  Serious: Yes (Hospitalization)
  Sender: FDA-Public Use
  Company Number: US-BIOGEN-2020BI00910271

PATIENT
  Sex: Female

DRUGS (2)
  1. TYSABRI [Suspect]
     Active Substance: NATALIZUMAB
     Indication: MATERNAL EXPOSURE TIMING UNSPECIFIED
     Route: 064
  2. OCRELIZUMAB. [Suspect]
     Active Substance: OCRELIZUMAB
     Indication: MATERNAL EXPOSURE TIMING UNSPECIFIED
     Route: 064

REACTIONS (8)
  - Pupillary reflex impaired [Unknown]
  - Respiratory distress [Unknown]
  - Hypotonia [Unknown]
  - Areflexia [Unknown]
  - Miosis [Unknown]
  - Cerebral infarction [Unknown]
  - Foetal exposure during pregnancy [Unknown]
  - Poor sucking reflex [Unknown]
